FAERS Safety Report 10975685 (Version 2)
Quarter: 2015Q2

REPORT INFORMATION
  Report Type: Spontaneous
  Country: CA (occurrence: CA)
  Receive Date: 20150401
  Receipt Date: 20150424
  Transmission Date: 20150821
  Serious: Yes (Other)
  Sender: FDA-Public Use
  Company Number: CA-PFIZER INC-2015107514

PATIENT
  Age: 30 Year
  Sex: Female

DRUGS (1)
  1. ADVIL [Suspect]
     Active Substance: IBUPROFEN
     Indication: HEADACHE
     Dosage: 2 DF (2 CAPSULES)
     Dates: start: 20150325, end: 20150325

REACTIONS (2)
  - Choking [Recovered/Resolved]
  - Product shape issue [Recovered/Resolved]

NARRATIVE: CASE EVENT DATE: 20150325
